FAERS Safety Report 8133781-4 (Version None)
Quarter: 2012Q1

REPORT INFORMATION
  Report Type: 
  Country: None (occurrence: None)
  Receive Date: 20120213
  Receipt Date: 20120213
  Transmission Date: 20120608
  Serious: No
  Sender: FDA-Public Use
  Company Number: None

PATIENT
  Age: 38 Year
  Sex: Female
  Weight: 79.832 kg

DRUGS (1)
  1. VIIBRYD [Suspect]
     Indication: MAJOR DEPRESSION
     Dosage: 20.0 MG
     Route: 048
     Dates: start: 20120105, end: 20120112

REACTIONS (7)
  - ABDOMINAL DISCOMFORT [None]
  - NAUSEA [None]
  - MALAISE [None]
  - HEADACHE [None]
  - EYE PAIN [None]
  - ABNORMAL SENSATION IN EYE [None]
  - VOMITING [None]
